FAERS Safety Report 8381313-8 (Version None)
Quarter: 2012Q2

REPORT INFORMATION
  Report Type: 
  Country: None (occurrence: None)
  Receive Date: 20120523
  Receipt Date: 20120511
  Transmission Date: 20120825
  Serious: Yes (Other)
  Sender: FDA-Public Use
  Company Number: JP-PFIZER INC-2012110704

PATIENT
  Age: 82 Year
  Sex: Female

DRUGS (10)
  1. ALDACTONE [Concomitant]
     Dosage: UNK
  2. ALENDRONATE SODIUM [Concomitant]
     Dosage: UNK
     Route: 048
  3. CELEBREX [Suspect]
     Dosage: 100 MG, BID
     Route: 048
  4. LANTUS [Concomitant]
     Dosage: UNK
  5. METFORMIN HYDROCHLORIDE [Concomitant]
     Dosage: UNK
     Route: 048
  6. CELEBREX [Suspect]
     Dosage: 200 MG, UNK
     Route: 048
     Dates: start: 20120411
  7. LANSOPRAZOLE [Concomitant]
     Dosage: UNK
     Route: 048
  8. LIPITOR [Concomitant]
     Dosage: 10 MG, UNK
  9. DIGOXIN [Concomitant]
     Dosage: UNK
  10. NOVORAPID [Concomitant]
     Dosage: UNK

REACTIONS (1)
  - EYE HAEMORRHAGE [None]
